FAERS Safety Report 9106748 (Version 1)
Quarter: 2013Q1

REPORT INFORMATION
  Report Type: Spontaneous
  Country: US (occurrence: US)
  Receive Date: 20130220
  Receipt Date: 20130220
  Transmission Date: 20140127
  Serious: Yes (Death)
  Sender: FDA-Public Use
  Company Number: US-PFIZER INC-2013062545

PATIENT
  Age: 23 Year
  Sex: Male

DRUGS (2)
  1. ALPRAZOLAM [Suspect]
     Dosage: 3 MG, UNK
     Route: 045
  2. METHADONE [Interacting]
     Dosage: 40 MG, UNK

REACTIONS (5)
  - Potentiating drug interaction [Fatal]
  - Toxicity to various agents [Fatal]
  - Brain injury [Fatal]
  - Rhabdomyolysis [Fatal]
  - Renal failure acute [Fatal]
